FAERS Safety Report 11961849 (Version 1)
Quarter: 2016Q1

REPORT INFORMATION
  Report Type: Spontaneous
  Country: US (occurrence: US)
  Receive Date: 20160126
  Receipt Date: 20160126
  Transmission Date: 20160526
  Serious: Yes (Other)
  Sender: FDA-Public Use
  Company Number: US-ALLERGAN-1601628US

PATIENT
  Age: 69 Year
  Sex: Female
  Weight: 52.15 kg

DRUGS (1)
  1. RESTASIS [Suspect]
     Active Substance: CYCLOSPORINE
     Indication: DRY EYE
     Dosage: 2 GTT, BID
     Route: 047
     Dates: start: 201512

REACTIONS (2)
  - Basal cell carcinoma [Not Recovered/Not Resolved]
  - Wrong technique in product usage process [Unknown]
